FAERS Safety Report 5642631-7 (Version None)
Quarter: 2008Q1

REPORT INFORMATION
  Report Type: 
  Country: None (occurrence: None)
  Receive Date: 20080228
  Receipt Date: 20080219
  Transmission Date: 20080703
  Serious: Yes (Other)
  Sender: FDA-Public Use
  Company Number: US-JNJFOC-20080204485

PATIENT
  Sex: Female
  Weight: 100.25 kg

DRUGS (8)
  1. REMICADE [Suspect]
     Route: 042
  2. REMICADE [Suspect]
     Route: 042
  3. REMICADE [Suspect]
     Indication: CROHN'S DISEASE
     Route: 042
  4. ZYRTEC [Concomitant]
  5. BENTYL [Concomitant]
     Indication: ABDOMINAL RIGIDITY
     Dosage: FREQUENCY: AS NEEDED
  6. PROMETHAZIN [Concomitant]
     Indication: ABDOMINAL PAIN UPPER
  7. PROMETHAZIN [Concomitant]
     Indication: NAUSEA
     Dosage: FREQUENCY: AS NEEDED
  8. LOMOTIL [Concomitant]
     Indication: DIARRHOEA

REACTIONS (1)
  - LUPUS-LIKE SYNDROME [None]
